FAERS Safety Report 6383573-1 (Version None)
Quarter: 2009Q4

REPORT INFORMATION
  Report Type: 
  Country: None (occurrence: None)
  Receive Date: 20091001
  Receipt Date: 20090924
  Transmission Date: 20100525
  Serious: Yes (Hospitalization)
  Sender: FDA-Public Use
  Company Number: US-ELI_LILLY_AND_COMPANY-US200909005755

PATIENT
  Sex: Male

DRUGS (8)
  1. HUMULIN N [Suspect]
  2. HUMULIN R [Suspect]
  3. HUMULIN 70/30 [Suspect]
     Dosage: 200 U, EACH EVENING
  4. HUMULIN 70/30 [Suspect]
     Dosage: 100 U, UNK
  5. HUMULIN 70/30 [Suspect]
     Dosage: UNK, UNKNOWN
  6. METFORMIN HCL [Concomitant]
  7. ORAL ANTIDIABETICS [Concomitant]
  8. ANTIHYPERTENSIVES [Concomitant]
     Indication: HYPERTENSION

REACTIONS (11)
  - ANXIETY [None]
  - BLISTER [None]
  - BLOOD GLUCOSE DECREASED [None]
  - BLOOD GLUCOSE INCREASED [None]
  - CENTRAL OBESITY [None]
  - DRUG INEFFECTIVE [None]
  - INCORRECT DOSE ADMINISTERED [None]
  - LOWER LIMB FRACTURE [None]
  - MALAISE [None]
  - MEMORY IMPAIRMENT [None]
  - PRODUCT CONTAINER ISSUE [None]
